FAERS Safety Report 20176157 (Version 2)
Quarter: 2022Q1

REPORT INFORMATION
  Report Type: Spontaneous
  Country: PL (occurrence: PL)
  Receive Date: 20211213
  Receipt Date: 20220301
  Transmission Date: 20220423
  Serious: Yes (Hospitalization)
  Sender: FDA-Public Use
  Company Number: PL-CELGENE-POL-20211202111

PATIENT
  Age: 65 Year
  Sex: Female

DRUGS (10)
  1. AZACITIDINE [Suspect]
     Active Substance: AZACITIDINE
     Indication: Myelodysplastic syndrome
     Dosage: 75 MILLIGRAM
     Route: 058
     Dates: start: 20210816, end: 20211103
  2. VENETOCLAX [Suspect]
     Active Substance: VENETOCLAX
     Indication: Myelodysplastic syndrome
     Route: 048
     Dates: start: 20210816, end: 20211107
  3. ESOMEPRAZOLE MAGNESIUM [Concomitant]
     Active Substance: ESOMEPRAZOLE MAGNESIUM
     Indication: Gastritis
     Dosage: 40 MILLIGRAM
     Route: 048
     Dates: start: 2021
  4. PREGABALIN [Concomitant]
     Active Substance: PREGABALIN
     Indication: Back pain
     Dosage: 300 MILLIGRAM
     Route: 048
     Dates: start: 2021
  5. PRIDINOL MESILATE [Concomitant]
     Active Substance: PRIDINOL MESILATE
     Indication: Back pain
     Dosage: 1.5 MILLIGRAM
     Route: 048
     Dates: start: 2021
  6. DULOXETINE HYDROCHLORIDE [Concomitant]
     Active Substance: DULOXETINE HYDROCHLORIDE
     Indication: Neurosis
     Dosage: 120 MILLIGRAM
     Route: 048
     Dates: start: 2021
  7. TRAZODONE HYDROCHLORIDE [Concomitant]
     Active Substance: TRAZODONE HYDROCHLORIDE
     Indication: Neurosis
     Dosage: 75 MILLIGRAM
     Route: 048
     Dates: start: 2021, end: 20211123
  8. NEBIVOLOL HYDROCHLORIDE [Concomitant]
     Active Substance: NEBIVOLOL HYDROCHLORIDE
     Indication: Myocardial ischaemia
     Dosage: 2.5 MILLIGRAM
     Route: 048
     Dates: start: 2021
  9. EUTHYROX [Concomitant]
     Active Substance: LEVOTHYROXINE SODIUM
     Indication: Thyroid disorder
     Dosage: 75 MICROGRAM
     Route: 048
     Dates: start: 2021
  10. ZOFRAN [Concomitant]
     Active Substance: ONDANSETRON HYDROCHLORIDE
     Indication: Prophylaxis of nausea and vomiting
     Route: 048
     Dates: start: 20210816

REACTIONS (1)
  - COVID-19 [Recovered/Resolved]

NARRATIVE: CASE EVENT DATE: 20211123
